FAERS Safety Report 7630897-3 (Version None)
Quarter: 2011Q3

REPORT INFORMATION
  Report Type: 
  Country: None (occurrence: None)
  Receive Date: 20110724
  Receipt Date: 20110714
  Transmission Date: 20111222
  Serious: Yes (Death, Hospitalization, Other)
  Sender: FDA-Public Use
  Company Number: JP-GENZYME-THYM-1001721

PATIENT

DRUGS (13)
  1. VALPROATE SODIUM [Concomitant]
     Indication: PROPHYLAXIS
     Dosage: UNK
     Dates: start: 20091012, end: 20091020
  2. SULFAMETHOXAZOLE W [Concomitant]
     Indication: INFECTION PROPHYLAXIS
     Dosage: UNK
     Dates: start: 20091013, end: 20091020
  3. VANCOMYCIN HYCHLORIDE [Concomitant]
     Indication: INFECTION PROPHYLAXIS
     Dosage: UNK
     Dates: start: 20091031, end: 20091105
  4. TACROLIMUS [Concomitant]
     Indication: PROPHYLAXIS
     Dosage: UNK
     Dates: start: 20091021, end: 20091108
  5. METHOTREXATE [Concomitant]
     Dosage: UNK
     Dates: start: 20091028, end: 20091028
  6. THYMOGLOBULIN [Suspect]
     Indication: BONE MARROW CONDITIONING REGIMEN
     Dosage: 50 MG, QD
     Route: 042
     Dates: start: 20091020, end: 20091020
  7. LENOGRASTIM [Concomitant]
     Indication: INFECTION PROPHYLAXIS
     Dosage: UNK
     Dates: start: 20091028, end: 20091111
  8. BUSULFAN [Concomitant]
     Indication: ACUTE MYELOID LEUKAEMIA
     Dosage: UNK
     Dates: start: 20091014, end: 20091017
  9. METHOTREXATE [Concomitant]
     Dosage: UNK
     Dates: start: 20091025, end: 20091025
  10. ANTIBIOTICS [Concomitant]
     Indication: INFECTION PROPHYLAXIS
  11. CYCLOPHOSPHAMIDE [Concomitant]
     Indication: ACUTE MYELOID LEUKAEMIA
     Dosage: UNK
     Dates: start: 20091019, end: 20091020
  12. METHOTREXATE [Concomitant]
     Dosage: UNK
     Dates: start: 20091102, end: 20091102
  13. METHOTREXATE [Concomitant]
     Indication: PROPHYLAXIS AGAINST GRAFT VERSUS HOST DISEASE
     Dosage: UNK
     Dates: start: 20091023, end: 20091023

REACTIONS (8)
  - VENOOCCLUSIVE LIVER DISEASE [None]
  - BLOOD PRESSURE DECREASED [None]
  - HEPATIC FAILURE [None]
  - STOMATITIS [None]
  - FEBRILE NEUTROPENIA [None]
  - PYREXIA [None]
  - RENAL FAILURE [None]
  - BACTERIAL SEPSIS [None]
